FAERS Safety Report 9315747 (Version 1)
Quarter: 2013Q2

REPORT INFORMATION
  Report Type: Spontaneous
  Country: JP (occurrence: JP)
  Receive Date: 20130529
  Receipt Date: 20130529
  Transmission Date: 20140414
  Serious: Yes (Other)
  Sender: FDA-Public Use
  Company Number: JP-PFIZER INC-2013157682

PATIENT
  Age: 50 Year
  Sex: Female

DRUGS (2)
  1. CORTRIL [Suspect]
     Indication: HYPOPITUITARISM
     Dosage: UNK
     Route: 048
  2. EXENATIDE [Interacting]

REACTIONS (5)
  - Drug interaction [Recovering/Resolving]
  - Adrenocortical insufficiency acute [Recovering/Resolving]
  - Blood pressure decreased [Recovering/Resolving]
  - Decreased appetite [Recovering/Resolving]
  - Malaise [Recovering/Resolving]
